FAERS Safety Report 10512856 (Version 3)
Quarter: 2014Q4

REPORT INFORMATION
  Report Type: Spontaneous
  Country: US (occurrence: US)
  Receive Date: 20141013
  Receipt Date: 20141027
  Transmission Date: 20150528
  Serious: Yes (Death)
  Sender: FDA-Public Use
  Company Number: US-UNITED THERAPEUTICS-UNT-2014-008811

PATIENT
  Sex: Female
  Weight: 54.88 kg

DRUGS (1)
  1. REMODULIN [Suspect]
     Active Substance: TREPROSTINIL
     Indication: COR PULMONALE CHRONIC
     Dosage: 0.036 ?G/KG, CONTINUING
     Route: 041
     Dates: start: 20140610

REACTIONS (3)
  - Pulmonary hypertension [Fatal]
  - Disease progression [Fatal]
  - Scleroderma [Fatal]
